FAERS Safety Report 9959438 (Version 1)
Quarter: 2014Q1

REPORT INFORMATION
  Report Type: Report from Study
  Country: US (occurrence: US)
  Receive Date: 20140305
  Receipt Date: 20140305
  Transmission Date: 20141002
  Serious: No
  Sender: FDA-Public Use
  Company Number: US-ABBVIE-13P-163-1106789-00

PATIENT
  Age: 63 Year
  Sex: Female

DRUGS (15)
  1. HUMIRA [Suspect]
     Indication: CROHN^S DISEASE
     Dates: start: 20130501
  2. NORVASC [Concomitant]
     Indication: BLOOD PRESSURE
  3. VITAMIN D [Concomitant]
     Indication: PRODUCT USED FOR UNKNOWN INDICATION
  4. KLONOPIN [Concomitant]
     Indication: ANXIETY
  5. LOMOTIL [Concomitant]
     Indication: DIARRHOEA
     Dosage: 4 TIMES DAY AS NEEDED
  6. LORTAB [Concomitant]
     Indication: PAIN
     Dosage: 1 EVERY 6-8 HOURS AS NEEDED
  7. LEVSIN/SL [Concomitant]
     Indication: ABDOMINAL RIGIDITY
  8. SYNTHROID [Concomitant]
     Indication: THYROID DISORDER
  9. CREON [Concomitant]
     Indication: PANCREATITIS
     Dosage: 12000/38000/60 UNITS 2 TABS BEFORE MEALS AND 1 IN PM
  10. PRILOSEC [Concomitant]
     Indication: GASTROOESOPHAGEAL REFLUX DISEASE
  11. POTASSIUM CHLORIDE [Concomitant]
     Indication: BLOOD POTASSIUM DECREASED
  12. PROMETHAZINE [Concomitant]
     Indication: NAUSEA
     Dosage: 25 MG EVERY 6-8 HOURS AS NEEDED
  13. ZOLOFT [Concomitant]
     Indication: DEPRESSION
  14. ZANAFLEX [Concomitant]
     Indication: MUSCLE SPASMS
  15. TRAZODONE [Concomitant]
     Indication: INSOMNIA
     Dosage: AT HOUR OF SLEEP

REACTIONS (2)
  - Musculoskeletal stiffness [Recovering/Resolving]
  - Neck pain [Recovering/Resolving]
